FAERS Safety Report 15048894 (Version 1)
Quarter: 2018Q2

REPORT INFORMATION
  Report Type: Spontaneous
  Country: US (occurrence: US)
  Receive Date: 20180622
  Receipt Date: 20180622
  Transmission Date: 20180711
  Serious: No
  Sender: FDA-Public Use
  Company Number: US-CELGENEUS-USA-20180605054

PATIENT
  Age: 55 Year
  Sex: Female

DRUGS (2)
  1. OTEZLA [Suspect]
     Active Substance: APREMILAST
     Dosage: 60 MILLIGRAM
     Route: 048
     Dates: start: 201806
  2. OTEZLA [Suspect]
     Active Substance: APREMILAST
     Indication: PSORIASIS
     Dosage: 10-20 MILLIGRAM (STARTER PACK)
     Route: 048
     Dates: start: 20180610

REACTIONS (9)
  - Nausea [Unknown]
  - Hot flush [Unknown]
  - Abdominal pain upper [Unknown]
  - Eating disorder [Unknown]
  - Pyrexia [Unknown]
  - Malaise [Unknown]
  - Night sweats [Unknown]
  - Faeces discoloured [Unknown]
  - Back pain [Unknown]

NARRATIVE: CASE EVENT DATE: 20180613
